FAERS Safety Report 5151120-8 (Version None)
Quarter: 2006Q4

REPORT INFORMATION
  Report Type: 
  Country: None (occurrence: None)
  Receive Date: 20061115
  Receipt Date: 20061107
  Transmission Date: 20070319
  Serious: Yes (Other)
  Sender: FDA-Public Use
  Company Number: FR-JNJFOC-20060906711

PATIENT
  Sex: Female
  Weight: 46 kg

DRUGS (8)
  1. RISPERDAL [Suspect]
     Route: 048
  2. RISPERDAL [Suspect]
     Route: 048
  3. RISPERDAL [Suspect]
     Indication: CHILDHOOD PSYCHOSIS
     Route: 048
  4. DEPAMIDE [Concomitant]
  5. TIAPRIDAL [Concomitant]
  6. ZYPREXA [Concomitant]
  7. EQUANIL [Concomitant]
  8. PRAZEPAM [Concomitant]

REACTIONS (4)
  - AMENORRHOEA [None]
  - GALACTORRHOEA [None]
  - HYPERPROLACTINAEMIA [None]
  - PITUITARY TUMOUR BENIGN [None]
